FAERS Safety Report 23056859 (Version 2)
Quarter: 2023Q4

REPORT INFORMATION
  Report Type: Spontaneous
  Country: US (occurrence: US)
  Receive Date: 20231012
  Receipt Date: 20231012
  Transmission Date: 20240109
  Serious: No
  Sender: FDA-Public Use
  Company Number: US-ABBVIE-5444298

PATIENT
  Sex: Female

DRUGS (1)
  1. LEVOTHYROXINE [Suspect]
     Active Substance: LEVOTHYROXINE
     Indication: Product used for unknown indication
     Dosage: FORM STRENGTH: 75 MICROGRAM
     Route: 048

REACTIONS (5)
  - Cardiac disorder [Unknown]
  - Thyroid function test abnormal [Unknown]
  - Palpitations [Unknown]
  - Adverse drug reaction [Unknown]
  - Product availability issue [Unknown]
